FAERS Safety Report 7157143-1 (Version None)
Quarter: 2010Q4

REPORT INFORMATION
  Report Type: 
  Country: None (occurrence: None)
  Receive Date: 20101214
  Receipt Date: 20100222
  Transmission Date: 20110411
  Serious: No
  Sender: FDA-Public Use
  Company Number: GB-ASTRAZENECA-2010SE00107

PATIENT
  Age: 87 Year
  Sex: Female
  Weight: 81.6 kg

DRUGS (7)
  1. CRESTOR [Suspect]
     Route: 048
     Dates: start: 20090101
  2. PANTOPRAZOLE [Concomitant]
  3. PREMARIN [Concomitant]
  4. PLAVIX [Concomitant]
  5. COZAAR [Concomitant]
  6. METOPROLOL [Concomitant]
  7. ASPIRIN [Concomitant]

REACTIONS (3)
  - EUPHORIC MOOD [None]
  - HALLUCINATION [None]
  - HALLUCINATION, VISUAL [None]
